FAERS Safety Report 10070780 (Version 1)
Quarter: 2014Q2

REPORT INFORMATION
  Report Type: Spontaneous
  Country: BR (occurrence: BR)
  Receive Date: 20140410
  Receipt Date: 20140410
  Transmission Date: 20141212
  Serious: Yes (Disabling, Other)
  Sender: FDA-Public Use
  Company Number: BR-PFIZER INC-2014099637

PATIENT
  Age: 53 Year
  Sex: Female
  Weight: 80 kg

DRUGS (3)
  1. LIPITOR [Suspect]
     Dosage: 5 MG (A QUARTER OF A 20MG TABLET) DAILY
     Route: 048
     Dates: start: 20090601
  2. ARADOIS [Concomitant]
     Indication: HYPERTENSION
     Dosage: 2 DF, 2 TABLETS DAILY
  3. AMLODIPINE BESILATE [Concomitant]
     Indication: HYPERTENSION
     Dosage: 1 DF, DAILY

REACTIONS (2)
  - Osteoarthritis [Unknown]
  - Varicose vein [Unknown]
